FAERS Safety Report 4303346-0 (Version None)
Quarter: 2004Q1

REPORT INFORMATION
  Report Type: 
  Country: None (occurrence: None)
  Receive Date: 20040223
  Receipt Date: 20040211
  Transmission Date: 20041129
  Serious: Yes (Other)
  Sender: FDA-Public Use
  Company Number: DE-JNJFOC-20040202812

PATIENT
  Age: 45 Year
  Sex: Male

DRUGS (5)
  1. TOPAMAX [Suspect]
     Indication: EPILEPSY
     Dosage: 100 MG, IN 1 DAY, ORAL
     Route: 048
     Dates: start: 20000101
  2. PARLODEL [Concomitant]
  3. MADOPAR (MADOPAR) [Concomitant]
  4. COMTESS (ENTACAPONE) [Concomitant]
  5. AMANTADINE HCL [Concomitant]

REACTIONS (8)
  - BRADYKINESIA [None]
  - BRADYPHRENIA [None]
  - CONDITION AGGRAVATED [None]
  - DEPRESSION [None]
  - DRUG INEFFECTIVE [None]
  - DRUG INTERACTION [None]
  - MEMORY IMPAIRMENT [None]
  - PARKINSON'S DISEASE [None]
